FAERS Safety Report 7115392-2 (Version None)
Quarter: 2010Q4

REPORT INFORMATION
  Report Type: 
  Country: None (occurrence: None)
  Receive Date: 20101122
  Receipt Date: 20101110
  Transmission Date: 20110411
  Serious: Yes (Death)
  Sender: FDA-Public Use
  Company Number: DE-AMGEN-DEUSP2010001734

PATIENT

DRUGS (15)
  1. NEUPOGEN [Suspect]
     Indication: ALLOGENIC BONE MARROW TRANSPLANTATION THERAPY
     Dosage: 800 A?G, UNK
     Route: 042
     Dates: start: 19920709, end: 19920720
  2. BUSULFAN [Concomitant]
  3. CYCLOPHOSPHAMIDE [Concomitant]
  4. VP-16 [Concomitant]
  5. CEFTAZIDIME [Concomitant]
     Dosage: UNK
     Dates: start: 19920623, end: 19920715
  6. VANCOMYCIN [Concomitant]
     Dosage: UNK
     Dates: start: 19920623, end: 19920728
  7. AMPHOTERICIN B [Concomitant]
     Dosage: UNK
     Dates: start: 19920620, end: 19920728
  8. CYCLOSPORINE [Concomitant]
     Dosage: UNK
     Dates: start: 19920630, end: 19920728
  9. ACYCLOVIR [Concomitant]
     Dosage: UNK
     Dates: start: 19920701, end: 19920728
  10. MORPHINE [Concomitant]
     Dosage: UNK
     Dates: start: 19920704, end: 19920728
  11. ACETYLCYSTEINE [Concomitant]
     Dosage: UNK
     Dates: start: 19920708, end: 19920718
  12. PROSTAVASIN                        /00501501/ [Concomitant]
     Dosage: UNK
     Dates: start: 19920713, end: 19920728
  13. ZIENAM [Concomitant]
     Dosage: UNK
     Dates: start: 19920716, end: 19920728
  14. FUROSEMIDE [Concomitant]
     Dosage: UNK
     Dates: start: 19920722, end: 19920728
  15. ALDACTONE [Concomitant]
     Dosage: UNK
     Dates: start: 19920724, end: 19920728

REACTIONS (2)
  - BONE PAIN [None]
  - DEATH [None]
